FAERS Safety Report 5430556-1 (Version None)
Quarter: 2007Q3

REPORT INFORMATION
  Report Type: 
  Country: None (occurrence: None)
  Receive Date: 20070731
  Receipt Date: 20070508
  Transmission Date: 20080115
  Serious: No
  Sender: FDA-Public Use
  Company Number: US200705002362

PATIENT
  Age: 59 Year
  Sex: Male
  Weight: 74.8 kg

DRUGS (4)
  1. BYETTA [Suspect]
     Indication: TYPE 2 DIABETES MELLITUS
     Dosage: 5 UG, 2/D, SUBCUTANEOUS
     Route: 058
     Dates: start: 20070506
  2. EXENATIDE PEN, DISPOSABLE DEVICE (EXENATIDE PEN) [Concomitant]
  3. GLUCOPHAGE [Concomitant]
  4. GLYBURIDE [Concomitant]

REACTIONS (2)
  - FATIGUE [None]
  - LETHARGY [None]
